FAERS Safety Report 13836008 (Version 6)
Quarter: 2018Q4

REPORT INFORMATION
  Report Type: Report from Study
  Country: US (occurrence: US)
  Receive Date: 20170804
  Receipt Date: 20181207
  Transmission Date: 20190204
  Serious: Yes (Other)
  Sender: FDA-Public Use
  Company Number: PHEH2017US024394

PATIENT
  Age: 54 Year
  Sex: Female

DRUGS (1)
  1. GILENYA [Suspect]
     Active Substance: FINGOLIMOD HYDROCHLORIDE
     Indication: MULTIPLE SCLEROSIS
     Dosage: 0.5 MG, QD
     Route: 048
     Dates: start: 20170616, end: 201807

REACTIONS (14)
  - Multiple sclerosis relapse [Recovering/Resolving]
  - Dizziness [Not Recovered/Not Resolved]
  - Coordination abnormal [Unknown]
  - Weight decreased [Not Recovered/Not Resolved]
  - Pain [Unknown]
  - Incontinence [Unknown]
  - Fall [Unknown]
  - Cough [Unknown]
  - Paraesthesia [Recovered/Resolved]
  - Confusional state [Unknown]
  - Muscle spasticity [Unknown]
  - Paresis [Unknown]
  - Abdominal pain upper [Recovered/Resolved]
  - Nausea [Not Recovered/Not Resolved]

NARRATIVE: CASE EVENT DATE: 20170726
